FAERS Safety Report 9770639 (Version 2)
Quarter: 2014Q1

REPORT INFORMATION
  Report Type: Spontaneous
  Country: US (occurrence: US)
  Receive Date: 20131218
  Receipt Date: 20140213
  Transmission Date: 20141002
  Serious: Yes (Other)
  Sender: FDA-Public Use
  Company Number: US-GLAXOSMITHKLINE-A1053914A

PATIENT
  Age: 62 Year
  Sex: Female

DRUGS (1)
  1. TYKERB [Suspect]
     Indication: BREAST CANCER
     Dosage: 1250MG PER DAY
     Route: 065

REACTIONS (13)
  - Melaena [Unknown]
  - Metastases to central nervous system [Not Recovered/Not Resolved]
  - Amnesia [Unknown]
  - Abdominal discomfort [Unknown]
  - Alopecia [Unknown]
  - Swelling [Unknown]
  - Dysuria [Unknown]
  - Constipation [Unknown]
  - Psychomotor hyperactivity [Unknown]
  - Photosensitivity reaction [Unknown]
  - Diarrhoea [Not Recovered/Not Resolved]
  - Fall [Unknown]
  - Surgery [Unknown]
